FAERS Safety Report 18397690 (Version 2)
Quarter: 2021Q1

REPORT INFORMATION
  Report Type: Spontaneous
  Country: GB (occurrence: GB)
  Receive Date: 20201019
  Receipt Date: 20210224
  Transmission Date: 20210419
  Serious: Yes (Other)
  Sender: FDA-Public Use
  Company Number: GB-BAUSCH-BL-2020-029842

PATIENT
  Sex: Male

DRUGS (26)
  1. CANNABIDIOL [Suspect]
     Active Substance: CANNABIDIOL
     Indication: PRODUCT USED FOR UNKNOWN INDICATION
     Dosage: CBD OIL ? SUPPLEMENT
     Route: 065
  2. PREGABALIN. [Suspect]
     Active Substance: PREGABALIN
     Indication: PRODUCT USED FOR UNKNOWN INDICATION
     Dosage: MEDICINE FROM UK
     Route: 065
  3. DESMODIUM [HERBALS] [Suspect]
     Active Substance: HERBALS
     Indication: PRODUCT USED FOR UNKNOWN INDICATION
     Dosage: BURBUR TINCTURE?SUPPLEMENT
     Route: 065
  4. LAMOTRIGINE. [Suspect]
     Active Substance: LAMOTRIGINE
     Indication: PRODUCT USED FOR UNKNOWN INDICATION
     Route: 065
  5. QUETIAPINE. [Suspect]
     Active Substance: QUETIAPINE
     Indication: PRODUCT USED FOR UNKNOWN INDICATION
     Dosage: MEDICINE FROM INDIA
     Route: 065
  6. SULFAMETHOXAZOLE [Suspect]
     Active Substance: SULFAMETHOXAZOLE
     Indication: PRODUCT USED FOR UNKNOWN INDICATION
     Dosage: MEDICINE FROM INDIA
     Route: 065
  7. CURCUMIN E100 [Suspect]
     Active Substance: CURCUMIN\DIETARY SUPPLEMENT
     Indication: PRODUCT USED FOR UNKNOWN INDICATION
     Dosage: LIPOSOMAL CURCUMIN?SUPPLEMENT
     Route: 065
  8. L?THEANINE [Suspect]
     Active Substance: DIETARY SUPPLEMENT
     Indication: PRODUCT USED FOR UNKNOWN INDICATION
     Dosage: LIPOSOMAL GABA WITH L THEANINE ? SUPPLEMENT
     Route: 065
  9. SILYBUM MARIANUM [Suspect]
     Active Substance: DIETARY SUPPLEMENT\HERBALS\MILK THISTLE
     Indication: PRODUCT USED FOR UNKNOWN INDICATION
     Dosage: SUPPLEMENT
     Route: 065
  10. FLAGYL [Suspect]
     Active Substance: METRONIDAZOLE\METRONIDAZOLE HYDROCHLORIDE
     Indication: PRODUCT USED FOR UNKNOWN INDICATION
     Dosage: MEDICINE FROM INDIA
     Route: 065
  11. EPSOM SALT [Suspect]
     Active Substance: MAGNESIUM SULFATE
     Indication: PRODUCT USED FOR UNKNOWN INDICATION
     Dosage: EBSOM BATH SALTS ? SUPPLEMENT
     Route: 065
  12. L?ASPARTIC ACID [Suspect]
     Active Substance: ASPARTIC ACID
     Indication: PRODUCT USED FOR UNKNOWN INDICATION
     Dosage: SUPPLEMENT
     Route: 065
  13. ORNITHINE [Suspect]
     Active Substance: ORNITHINE
     Indication: PRODUCT USED FOR UNKNOWN INDICATION
     Route: 065
  14. MINOCYCLINE [Suspect]
     Active Substance: MINOCYCLINE HYDROCHLORIDE
     Indication: PRODUCT USED FOR UNKNOWN INDICATION
     Dosage: MEDICINE FROM INDIA
     Route: 065
  15. AMOXICILLIN. [Suspect]
     Active Substance: AMOXICILLIN
     Indication: PRODUCT USED FOR UNKNOWN INDICATION
     Dosage: FROM UK
     Route: 065
  16. MAGNESIUM [Suspect]
     Active Substance: MAGNESIUM
     Indication: PRODUCT USED FOR UNKNOWN INDICATION
     Dosage: SUPPLEMENT
     Route: 065
  17. PIMPINELLA ANISUM [Suspect]
     Active Substance: PIMPINELLA ANISUM WHOLE
     Indication: PRODUCT USED FOR UNKNOWN INDICATION
     Dosage: BURBUR TINCTURE ? SUPPLEMENT
     Route: 065
  18. GLUTATHIONE [Suspect]
     Active Substance: GLUTATHIONE
     Indication: PRODUCT USED FOR UNKNOWN INDICATION
     Dosage: LIPOSOMAL GLUTATHIONE ? SUPPLEMENT
     Route: 065
  19. TEA, GREEN [Suspect]
     Active Substance: GREEN TEA LEAF
     Indication: PRODUCT USED FOR UNKNOWN INDICATION
     Dosage: MATCHA
     Route: 065
  20. TRIMETHOPRIM. [Suspect]
     Active Substance: TRIMETHOPRIM
     Indication: PRODUCT USED FOR UNKNOWN INDICATION
     Dosage: MEDICINE FROM INDIA
     Route: 065
  21. SEA SALT [Suspect]
     Active Substance: SEA SALT
     Indication: PRODUCT USED FOR UNKNOWN INDICATION
     Dosage: CELTIC SEA SALT ? SUPPLEMENT
     Route: 065
  22. ASCORBIC ACID. [Suspect]
     Active Substance: ASCORBIC ACID
     Indication: PRODUCT USED FOR UNKNOWN INDICATION
     Dosage: LIPOSOMAL VITAMIN C?SUPPLEMENT
     Route: 065
  23. ZINC. [Suspect]
     Active Substance: ZINC
     Indication: PRODUCT USED FOR UNKNOWN INDICATION
     Dosage: SUPPLEMENT
     Route: 065
  24. SACCHAROMYCES BOULARDII [Suspect]
     Active Substance: SACCHAROMYCES CEREVISIAE
     Indication: PRODUCT USED FOR UNKNOWN INDICATION
     Dosage: SUPPLEMENT
     Route: 065
  25. RIFAMPICIN [Suspect]
     Active Substance: RIFAMPIN
     Indication: PRODUCT USED FOR UNKNOWN INDICATION
     Dosage: MEDICINE FROM INDIA
     Route: 065
  26. GAMMA?AMINOBUTYRIC ACID [Suspect]
     Active Substance: .GAMMA.-AMINOBUTYRIC ACID
     Indication: PRODUCT USED FOR UNKNOWN INDICATION
     Dosage: LIPOSOMAL GABA WITH L THEANINE ? SUPPLEMENT
     Route: 065

REACTIONS (2)
  - Metal poisoning [Unknown]
  - Seizure [Unknown]

NARRATIVE: CASE EVENT DATE: 202006
